FAERS Safety Report 6768137-X (Version None)
Quarter: 2010Q2

REPORT INFORMATION
  Report Type: 
  Country: None (occurrence: None)
  Receive Date: 20100610
  Receipt Date: 20100526
  Transmission Date: 20101027
  Serious: Yes (Other)
  Sender: FDA-Public Use
  Company Number: 2010002137

PATIENT
  Sex: Male

DRUGS (5)
  1. TARCEVA [Suspect]
     Indication: DRUG USE FOR UNKNOWN INDICATION
     Dosage: 100 MG, QD, ORAL
     Route: 048
     Dates: start: 20100101
  2. GEMZAR [Suspect]
     Indication: DRUG USE FOR UNKNOWN INDICATION
     Dates: start: 20100101
  3. PANCRELIPASE (PANCRELIPASE) [Concomitant]
  4. METOCLOPRAMIDE (METOCLOPRAMIDE) [Concomitant]
  5. SIMETHICONE (DIMETICONE, ACTIVATED) [Concomitant]

REACTIONS (3)
  - LEUKOPENIA [None]
  - RASH [None]
  - THROMBOCYTOPENIA [None]
